FAERS Safety Report 15846183 (Version 1)
Quarter: 2019Q1

REPORT INFORMATION
  Report Type: Spontaneous
  Country: US (occurrence: US)
  Receive Date: 20190120
  Receipt Date: 20190120
  Transmission Date: 20190417
  Serious: No
  Sender: FDA-Public Use
  Company Number: US-JNJFOC-20181236056

PATIENT
  Sex: Male
  Weight: 89.81 kg

DRUGS (1)
  1. TYLENOL EXTRA STRENGTH [Suspect]
     Active Substance: ACETAMINOPHEN
     Indication: PAIN
     Dosage: 1 TYLENOL AT 2 AM AT NIGHT ONCE A DAY
     Route: 048

REACTIONS (1)
  - Incorrect dose administered [Unknown]
